FAERS Safety Report 7110055-1 (Version None)
Quarter: 2010Q4

REPORT INFORMATION
  Report Type: 
  Country: None (occurrence: None)
  Receive Date: 20101112
  Receipt Date: 20101027
  Transmission Date: 20110411
  Serious: Yes (Hospitalization)
  Sender: FDA-Public Use
  Company Number: 1-18212931

PATIENT
  Age: 48 Year
  Sex: Female
  Weight: 75.7507 kg

DRUGS (13)
  1. QUININE SULFATE [Suspect]
     Indication: MUSCLE SPASMS
     Dosage: AS NEEDED, ORAL
     Route: 048
     Dates: start: 20050413
  2. QUININE (ALLAN PHARMACEUTICAL LLC.) [Suspect]
     Indication: MUSCLE SPASMS
     Dosage: AS NEEDED, ORAL
     Route: 048
     Dates: start: 20080809
  3. NEURONTIN [Concomitant]
  4. CENTRUM MULTIVITAMIN [Concomitant]
  5. FOLIC ACID SUPPLEMENT [Concomitant]
  6. CALCIUM SUPPLEMENT [Concomitant]
  7. VITAMIN D [Concomitant]
  8. LYRICA [Concomitant]
  9. ARAVA [Concomitant]
  10. CELEBREX [Concomitant]
  11. CYMBALTA [Concomitant]
  12. ATENOLOL [Concomitant]
  13. FLEXERIL [Concomitant]

REACTIONS (23)
  - ABDOMINAL PAIN [None]
  - ANAEMIA [None]
  - ANXIETY [None]
  - BACK PAIN [None]
  - COAGULOPATHY [None]
  - DRUG HYPERSENSITIVITY [None]
  - FEAR [None]
  - FOOT OPERATION [None]
  - GASTROINTESTINAL DISORDER [None]
  - GRIEF REACTION [None]
  - HAEMORRHAGE [None]
  - HERPES ZOSTER [None]
  - HYPERTENSION [None]
  - LEUKOPENIA [None]
  - NERVOUSNESS [None]
  - NEUTROPENIA [None]
  - PAIN [None]
  - PAIN IN EXTREMITY [None]
  - RENAL FAILURE ACUTE [None]
  - THROMBOTIC THROMBOCYTOPENIC PURPURA [None]
  - UNEVALUABLE EVENT [None]
  - VOMITING [None]
  - WHITE BLOOD CELL COUNT INCREASED [None]
